FAERS Safety Report 14590706 (Version 1)
Quarter: 2018Q1

REPORT INFORMATION
  Report Type: Spontaneous
  Country: US (occurrence: US)
  Receive Date: 20180301
  Receipt Date: 20180301
  Transmission Date: 20180509
  Serious: Yes (Life-Threatening)
  Sender: FDA-Public Use
  Company Number: None

PATIENT
  Age: 15 Month
  Sex: Female
  Weight: 10.8 kg

DRUGS (1)
  1. BABY ORAJEL INSTANT TEETHING PAIN RELIEF [Suspect]
     Active Substance: BENZOCAINE
     Indication: TEETHING
     Dosage: ?          QUANTITY:1 DOSE;OTHER ROUTE:APPLIED TO THE GUMS?
     Route: 061
     Dates: start: 20180226, end: 20180226

REACTIONS (9)
  - Screaming [None]
  - Unresponsive to stimuli [None]
  - Erythema [None]
  - Respiratory arrest [None]
  - Cyanosis [None]
  - Gait disturbance [None]
  - Crying [None]
  - Aggression [None]
  - Staring [None]

NARRATIVE: CASE EVENT DATE: 20180226
